FAERS Safety Report 20372334 (Version 2)
Quarter: 2022Q1

REPORT INFORMATION
  Report Type: Report from Study
  Country: US (occurrence: US)
  Receive Date: 20220124
  Receipt Date: 20220131
  Transmission Date: 20220424
  Serious: Yes (Death)
  Sender: FDA-Public Use
  Company Number: US-ABBVIE-22K-163-4247001-00

PATIENT
  Sex: Female

DRUGS (1)
  1. CREON [Suspect]
     Active Substance: PANCRELIPASE AMYLASE\PANCRELIPASE LIPASE\PANCRELIPASE PROTEASE
     Indication: Pancreatic carcinoma stage IV
     Dosage: 2 CAPSULES BY MOUTH WITH MEALS AND 1 CAPSULE WITH EVERY SNACKS MAX DOSE 9 PER DAY
     Route: 048
     Dates: start: 202107

REACTIONS (2)
  - Pancreatic carcinoma [Fatal]
  - Respiratory failure [Fatal]

NARRATIVE: CASE EVENT DATE: 20210101
